FAERS Safety Report 8236041-6 (Version None)
Quarter: 2012Q1

REPORT INFORMATION
  Report Type: 
  Country: None (occurrence: None)
  Receive Date: 20120326
  Receipt Date: 20120320
  Transmission Date: 20120608
  Serious: Yes (Hospitalization)
  Sender: FDA-Public Use
  Company Number: FR-ASTRAZENECA-2012SE03362

PATIENT
  Age: 80 Year
  Sex: Male

DRUGS (7)
  1. LOVENOX [Suspect]
     Route: 058
     Dates: start: 20111114, end: 20111114
  2. ACETAMINOPHEN [Suspect]
     Route: 048
     Dates: start: 20111114, end: 20111116
  3. KETOPROFEN [Suspect]
     Route: 048
     Dates: start: 20111114, end: 20111115
  4. DIPRIVAN [Suspect]
     Indication: ANAESTHESIA
     Dosage: ONCE/SINGLE ADMINISTRATION
     Route: 042
     Dates: start: 20111114, end: 20111114
  5. TRAMADOL HCL [Suspect]
     Route: 048
     Dates: start: 20111114, end: 20111115
  6. SUFENTANIL CITRATE [Suspect]
     Indication: ANAESTHESIA
     Dosage: ONCE/SINGLE ADMINISTRATION
     Route: 051
     Dates: start: 20111114, end: 20111114
  7. INNOHEP [Concomitant]
     Route: 058

REACTIONS (3)
  - PRURITUS [None]
  - ERYTHEMA [None]
  - PIGMENTATION DISORDER [None]
